FAERS Safety Report 25591404 (Version 1)
Quarter: 2025Q3

REPORT INFORMATION
  Report Type: Spontaneous
  Country: EU (occurrence: EU)
  Receive Date: 20250722
  Receipt Date: 20250722
  Transmission Date: 20251021
  Serious: Yes (Hospitalization)
  Sender: SIGMAPHARM
  Company Number: EU-SIGMAPHARM LABORATORIES, LLC-2025SIG00047

PATIENT
  Age: 3 Decade
  Sex: Female

DRUGS (1)
  1. ASENAPINE [Suspect]
     Active Substance: ASENAPINE
     Indication: Schizophrenia
     Dosage: 25 MG, 2X/DAY
     Route: 048
     Dates: start: 2020, end: 2023

REACTIONS (7)
  - Catatonia [Recovering/Resolving]
  - Dystonia [Recovered/Resolved]
  - Sedation [Unknown]
  - Depression [Unknown]
  - Hypoaesthesia oral [Recovering/Resolving]
  - Overdose [Recovered/Resolved]
  - Medication error [Recovered/Resolved]
